FAERS Safety Report 11648947 (Version 2)
Quarter: 2015Q4

REPORT INFORMATION
  Report Type: Spontaneous
  Country: US (occurrence: US)
  Receive Date: 20151021
  Receipt Date: 20151201
  Transmission Date: 20160304
  Serious: Yes (Other)
  Sender: FDA-Public Use
  Company Number: US-AMGEN-USASP2015108288

PATIENT
  Sex: Female

DRUGS (1)
  1. ENBREL [Suspect]
     Active Substance: ETANERCEPT
     Indication: PSORIATIC ARTHROPATHY
     Dosage: UNK UNK, QWK
     Route: 065

REACTIONS (6)
  - Nasal septum deviation [Unknown]
  - Muscle rupture [Unknown]
  - Intervertebral disc protrusion [Unknown]
  - Cough [Unknown]
  - Drug dose omission [Unknown]
  - Device issue [Unknown]
